FAERS Safety Report 8398380-8 (Version None)
Quarter: 2012Q2

REPORT INFORMATION
  Report Type: 
  Country: None (occurrence: None)
  Receive Date: 20120323
  Receipt Date: 20110427
  Transmission Date: 20120825
  Serious: Yes (Hospitalization)
  Sender: FDA-Public Use
  Company Number: 163-21880-10120431

PATIENT
  Age: 84 Year
  Sex: Male

DRUGS (7)
  1. REVLIMID [Suspect]
     Indication: MULTIPLE MYELOMA
     Dosage: 15 MG, 21/28 DAYS, PO
     Route: 048
     Dates: start: 20100201
  2. ASPIRIN [Concomitant]
  3. AVODART [Concomitant]
  4. DECADRON [Concomitant]
  5. COUMADIN [Concomitant]
  6. XANAX [Concomitant]
  7. TRIPLEX (VEGANIN) [Concomitant]

REACTIONS (4)
  - PROTHROMBIN LEVEL INCREASED [None]
  - BLOOD CREATININE INCREASED [None]
  - GASTROINTESTINAL HAEMORRHAGE [None]
  - DIARRHOEA [None]
